FAERS Safety Report 5776065-1 (Version None)
Quarter: 2008Q2

REPORT INFORMATION
  Report Type: 
  Country: None (occurrence: None)
  Receive Date: 20080613
  Receipt Date: 20080602
  Transmission Date: 20081010
  Serious: Yes (Death)
  Sender: FDA-Public Use
  Company Number: S08-TUR-02013-01

PATIENT
  Age: 90 Year
  Sex: Female

DRUGS (1)
  1. MEMANTINE HCL [Suspect]
     Indication: DEMENTIA ALZHEIMER'S TYPE
     Dosage: 20 MG QD PO
     Route: 048
     Dates: start: 20080420, end: 20080524

REACTIONS (1)
  - ISCHAEMIC STROKE [None]
